FAERS Safety Report 16934084 (Version 1)
Quarter: 2019Q4

REPORT INFORMATION
  Report Type: Report from Study
  Country: ES (occurrence: ES)
  Receive Date: 20191018
  Receipt Date: 20191018
  Transmission Date: 20200122
  Serious: Yes (Hospitalization)
  Sender: FDA-Public Use
  Company Number: ES-TEVA-2019-ES-1123375

PATIENT
  Age: 36 Year
  Sex: Female

DRUGS (2)
  1. NAPROXENO (2002A) [Suspect]
     Active Substance: NAPROXEN
     Indication: PAIN
     Dosage: 1 GRAM
     Route: 048
     Dates: start: 20171210, end: 20171224
  2. METAMIZOL (111A) [Suspect]
     Active Substance: METAMIZOL SODIUM
     Indication: PAIN
     Dosage: 1750 MILLIGRAM
     Route: 048
     Dates: start: 20171210, end: 20180119

REACTIONS (1)
  - Hepatitis cholestatic [Recovered/Resolved]

NARRATIVE: CASE EVENT DATE: 201712
